FAERS Safety Report 9531117 (Version 1)
Quarter: 2013Q3

REPORT INFORMATION
  Report Type: Spontaneous
  Country: CA (occurrence: CA)
  Receive Date: 20130918
  Receipt Date: 20130918
  Transmission Date: 20140515
  Serious: Yes (Disabling)
  Sender: FDA-Public Use
  Company Number: CA-ASTRAZENECA-2013SE68844

PATIENT
  Age: 75 Year
  Sex: Male
  Weight: 71 kg

DRUGS (7)
  1. CASODEX [Suspect]
     Route: 048
  2. SEROQUEL [Suspect]
     Route: 048
  3. SEROQUEL [Suspect]
     Dosage: QUETIAPINE
     Route: 048
  4. COLACE [Concomitant]
  5. LACTULOSE [Concomitant]
  6. SENOKOT [Concomitant]
  7. TYLENOL [Concomitant]

REACTIONS (2)
  - Breast pain [Unknown]
  - Gynaecomastia [Unknown]
